FAERS Safety Report 18593432 (Version 2)
Quarter: 2020Q4

REPORT INFORMATION
  Report Type: Report from Study
  Country: BE (occurrence: BE)
  Receive Date: 20201208
  Receipt Date: 20201229
  Transmission Date: 20210114
  Serious: Yes (Death, Other)
  Sender: FDA-Public Use
  Company Number: BE-ALXN-A202013656

PATIENT
  Age: 50 Year
  Sex: Female
  Weight: 61.1 kg

DRUGS (2)
  1. SOLIRIS [Suspect]
     Active Substance: ECULIZUMAB
     Indication: THROMBOTIC MICROANGIOPATHY
     Dosage: 1200 MG, Q2W
     Route: 042
     Dates: start: 20200910, end: 20201105
  2. SOLIRIS [Suspect]
     Active Substance: ECULIZUMAB
     Indication: OFF LABEL USE

REACTIONS (2)
  - Varicella zoster pneumonia [Fatal]
  - Off label use [Unknown]

NARRATIVE: CASE EVENT DATE: 20200910
